FAERS Safety Report 6032671-0 (Version None)
Quarter: 2009Q1

REPORT INFORMATION
  Report Type: 
  Country: None (occurrence: None)
  Receive Date: 20090109
  Receipt Date: 20090105
  Transmission Date: 20090719
  Serious: Yes (Hospitalization)
  Sender: FDA-Public Use
  Company Number: US-JNJFOC-20090101048

PATIENT
  Sex: Female
  Weight: 41.73 kg

DRUGS (4)
  1. RISPERDAL [Suspect]
     Indication: SEDATIVE THERAPY
     Route: 048
  2. RISPERDAL [Suspect]
     Indication: RELAXATION THERAPY
     Route: 048
  3. ATIVAN [Concomitant]
     Indication: AGITATION
     Route: 048
  4. MORPHINE [Concomitant]
     Indication: CHRONIC OBSTRUCTIVE PULMONARY DISEASE
     Route: 048

REACTIONS (19)
  - ABNORMAL BEHAVIOUR [None]
  - AGITATION [None]
  - ANOREXIA [None]
  - CHRONIC OBSTRUCTIVE PULMONARY DISEASE [None]
  - CONSTIPATION [None]
  - DECREASED ACTIVITY [None]
  - DEHYDRATION [None]
  - DELUSION [None]
  - DIZZINESS [None]
  - DRY MOUTH [None]
  - DYSKINESIA [None]
  - DYSSTASIA [None]
  - DYSURIA [None]
  - EMOTIONAL DISORDER [None]
  - LETHARGY [None]
  - OFF LABEL USE [None]
  - RESPIRATORY TRACT INFECTION [None]
  - SPEECH DISORDER [None]
  - WEIGHT DECREASED [None]
